FAERS Safety Report 7441561-8 (Version None)
Quarter: 2011Q2

REPORT INFORMATION
  Report Type: 
  Country: None (occurrence: None)
  Receive Date: 20110428
  Receipt Date: 20110421
  Transmission Date: 20111010
  Serious: Yes (Death, Hospitalization, Other)
  Sender: FDA-Public Use
  Company Number: AU-CELGENEUS-008-C5013-04120517

PATIENT
  Sex: Male
  Weight: 111 kg

DRUGS (7)
  1. LENALIDOMIDE [Suspect]
     Indication: MULTIPLE MYELOMA
     Dosage: UNKNOWN
     Route: 048
     Dates: start: 20040101
  2. SODIUM CHLODRONATE [Concomitant]
     Indication: PROPHYLAXIS
     Dosage: UNKNOWN
     Route: 065
     Dates: start: 20010301
  3. SLOW-K [Concomitant]
     Route: 065
  4. FILGRASTIM [Concomitant]
     Indication: NEUTROPENIA
     Route: 065
     Dates: start: 20040211
  5. RED BLOOD CELLS [Concomitant]
     Route: 051
     Dates: start: 20041001, end: 20041001
  6. BONEFOS [Concomitant]
     Dosage: 1600 MILLIGRAM
     Route: 048
  7. PRAZOSIN HCL [Concomitant]
     Dosage: UNKNOWN
     Route: 065
     Dates: start: 20040304

REACTIONS (1)
  - PROSTATE CANCER [None]
